FAERS Safety Report 25832174 (Version 1)
Quarter: 2025Q3

REPORT INFORMATION
  Report Type: Spontaneous
  Country: CN (occurrence: CN)
  Receive Date: 20250922
  Receipt Date: 20250922
  Transmission Date: 20251021
  Serious: Yes (Other)
  Sender: ASCEND THERAPEUTICS US, LLC
  Company Number: CN-Ascend Therapeutics US, LLC-2185019

PATIENT
  Age: 3 Year
  Sex: Female

DRUGS (2)
  1. ESTROGEL [Suspect]
     Active Substance: ESTRADIOL
     Indication: Product used for unknown indication
     Dates: start: 20250719, end: 202508
  2. ESTRADIOL [Suspect]
     Active Substance: ESTRADIOL
     Dates: start: 20250719, end: 202508

REACTIONS (2)
  - Precocious puberty [Unknown]
  - Accidental exposure to product by child [Recovered/Resolved]

NARRATIVE: CASE EVENT DATE: 20250719
